FAERS Safety Report 7974490-1 (Version None)
Quarter: 2011Q4

REPORT INFORMATION
  Report Type: 
  Country: None (occurrence: None)
  Receive Date: 20111213
  Receipt Date: 20111207
  Transmission Date: 20120403
  Serious: Yes (Other)
  Sender: FDA-Public Use
  Company Number: CHPA2011CA017654

PATIENT
  Age: 62 Year
  Sex: Female

DRUGS (1)
  1. BUCKLEY'S COLD + SINUS DAY LIQUID GELS [Suspect]
     Indication: NASOPHARYNGITIS
     Dosage: 2 DF, ONCE/SINGLE
     Route: 048
     Dates: start: 20110101, end: 20110101

REACTIONS (4)
  - HEART RATE INCREASED [None]
  - HYPERHIDROSIS [None]
  - BRONCHOPNEUMONIA [None]
  - DYSPNOEA [None]
